FAERS Safety Report 8071500-0 (Version None)
Quarter: 2012Q1

REPORT INFORMATION
  Report Type: 
  Country: None (occurrence: None)
  Receive Date: 20120125
  Receipt Date: 20120112
  Transmission Date: 20120608
  Serious: Yes (Other)
  Sender: FDA-Public Use
  Company Number: JP-MYLANLABS-2012S1001532

PATIENT
  Age: 56 Year
  Sex: Female

DRUGS (6)
  1. PACLITAXEL [Suspect]
     Indication: OVARIAN CANCER
     Route: 041
     Dates: start: 20110801
  2. CARBOPLATIN [Suspect]
     Indication: OVARIAN CANCER
     Route: 041
     Dates: start: 20110801
  3. DEXAMETHASONE SODIUM PHOSPHATE [Concomitant]
     Indication: PREMEDICATION
     Route: 048
     Dates: start: 20110801
  4. GRANISETRON [Concomitant]
     Indication: PREMEDICATION
     Route: 048
     Dates: start: 20110801
  5. TAXOTERE [Suspect]
     Indication: OVARIAN CANCER
     Route: 041
     Dates: start: 20111020, end: 20111020
  6. DECADRON [Concomitant]
     Indication: PREMEDICATION
     Dates: start: 20110801

REACTIONS (2)
  - ANGIOEDEMA [None]
  - INJECTION SITE INDURATION [None]
